FAERS Safety Report 23671357 (Version 1)
Quarter: 2024Q1

REPORT INFORMATION
  Report Type: Spontaneous
  Country: ES (occurrence: ES)
  Receive Date: 20240326
  Receipt Date: 20240326
  Transmission Date: 20240410
  Serious: Yes (Hospitalization)
  Sender: FDA-Public Use
  Company Number: ES-SSPHARMA-2024ESSSP00013

PATIENT
  Age: 76 Year
  Sex: Male

DRUGS (2)
  1. ROCALTROL [Suspect]
     Active Substance: CALCITRIOL
     Indication: Vitamin D deficiency
     Route: 048
     Dates: start: 202106, end: 202309
  2. ROCALTROL [Suspect]
     Active Substance: CALCITRIOL
     Route: 048
     Dates: start: 202309, end: 20231212

REACTIONS (1)
  - Hypercalcaemia [Recovered/Resolved]

NARRATIVE: CASE EVENT DATE: 20231212
